FAERS Safety Report 25291324 (Version 1)
Quarter: 2025Q2

REPORT INFORMATION
  Report Type: Spontaneous
  Country: US (occurrence: US)
  Receive Date: 20250510
  Receipt Date: 20250510
  Transmission Date: 20250716
  Serious: No
  Sender: SANOFI AVENTIS
  Company Number: US-SA-2025SA119071

PATIENT
  Age: 58 Year
  Sex: Female

DRUGS (14)
  1. DUPIXENT [Suspect]
     Active Substance: DUPILUMAB
     Indication: Dermatitis atopic
     Route: 058
     Dates: start: 20210817
  2. LISINOPRIL [Concomitant]
     Active Substance: LISINOPRIL
  3. TACROLIMUS [Concomitant]
     Active Substance: TACROLIMUS
  4. LYRICA [Concomitant]
     Active Substance: PREGABALIN
  5. NALTREXONE [Concomitant]
     Active Substance: NALTREXONE
  6. BUMETANIDE [Concomitant]
     Active Substance: BUMETANIDE
  7. TESTOSTERONE [Concomitant]
     Active Substance: TESTOSTERONE
  8. QUERCETIN [Concomitant]
     Active Substance: QUERCETIN
  9. XYZAL [Concomitant]
     Active Substance: LEVOCETIRIZINE DIHYDROCHLORIDE
  10. LEVOTHYROXINE [Concomitant]
     Active Substance: LEVOTHYROXINE
  11. TRAZODONE [Concomitant]
     Active Substance: TRAZODONE HYDROCHLORIDE
  12. ESTRADIOL [Concomitant]
     Active Substance: ESTRADIOL
  13. LEXAPRO [Concomitant]
     Active Substance: ESCITALOPRAM OXALATE
  14. ACETAMINOPHEN\HYDROCODONE [Concomitant]
     Active Substance: ACETAMINOPHEN\HYDROCODONE

REACTIONS (2)
  - Rash [Recovering/Resolving]
  - Skin burning sensation [Recovering/Resolving]

NARRATIVE: CASE EVENT DATE: 20240801
